FAERS Safety Report 9717196 (Version 2)
Quarter: 2013Q4

REPORT INFORMATION
  Report Type: Report from Study
  Country: US (occurrence: US)
  Receive Date: 20131127
  Receipt Date: 20131213
  Transmission Date: 20140711
  Serious: Yes (Hospitalization, Other)
  Sender: FDA-Public Use
  Company Number: US-ABBVIE-13P-163-1173270-00

PATIENT
  Age: 48 Year
  Sex: Female
  Weight: 90.8 kg

DRUGS (13)
  1. HUMIRA [Suspect]
     Indication: CROHN^S DISEASE
     Dosage: ONE DOSE
     Dates: start: 2012, end: 2012
  2. HUMIRA [Suspect]
     Dosage: 1 OR 2 WEEKS AFTER 80 MG DOSE
     Dates: start: 2012
  3. CLOROX SOAKS [Suspect]
     Indication: STAPHYLOCOCCAL SKIN INFECTION
  4. CLOROX SOAKS [Suspect]
  5. IMITREX [Concomitant]
     Indication: MIGRAINE
  6. OXYCODONE [Concomitant]
     Indication: FURUNCLE
  7. OXYCODONE [Concomitant]
     Indication: PAIN
  8. TYLENOL [Concomitant]
     Indication: MIGRAINE
     Dosage: TAKEN WITH ASPIRIN
  9. ASPIRIN [Concomitant]
     Indication: MIGRAINE
     Dosage: TAKEN WITH TYLENOL
  10. IBUPROFEN [Concomitant]
     Indication: PRODUCT USED FOR UNKNOWN INDICATION
  11. CALCIUM [Concomitant]
     Indication: PRODUCT USED FOR UNKNOWN INDICATION
     Dosage: EVERY ONCE IN A WHILE
  12. HYDROCHLOROTHIAZIDE [Concomitant]
     Indication: HYPERTENSION
  13. ZOMIG [Concomitant]
     Indication: MIGRAINE

REACTIONS (23)
  - Parotid gland haemorrhage [Not Recovered/Not Resolved]
  - Skin reaction [Not Recovered/Not Resolved]
  - Dry skin [Not Recovered/Not Resolved]
  - Hypertension [Recovered/Resolved]
  - Rash [Recovered/Resolved]
  - Staphylococcal skin infection [Unknown]
  - Neck injury [Recovered/Resolved]
  - Staphylococcal infection [Unknown]
  - Urticaria [Unknown]
  - Rash [Unknown]
  - Rash [Not Recovered/Not Resolved]
  - Upper respiratory tract infection [Recovered/Resolved]
  - Hordeolum [Recovered/Resolved]
  - Furuncle [Unknown]
  - Injury [Unknown]
  - Sialoadenitis [Recovered/Resolved]
  - Contusion [Recovered/Resolved]
  - Device malfunction [Not Recovered/Not Resolved]
  - Injection site bruising [Recovered/Resolved]
  - Injection site swelling [Not Recovered/Not Resolved]
  - Local swelling [Recovered/Resolved]
  - Genital infection female [Recovered/Resolved]
  - Immunodeficiency [Unknown]
